FAERS Safety Report 9539234 (Version 2)
Quarter: 2014Q2

REPORT INFORMATION
  Report Type: Spontaneous
  Country: US (occurrence: None)
  Receive Date: 20130917
  Receipt Date: 20140404
  Transmission Date: 20141212
  Serious: Yes (Hospitalization, Other)
  Sender: FDA-Public Use
  Company Number: 2013-US-000152

PATIENT
  Age: 21 Year
  Sex: Female

DRUGS (6)
  1. XYREM [Suspect]
     Indication: NARCOLEPSY
     Route: 048
     Dates: start: 20130115, end: 2013
  2. XYREM [Suspect]
     Indication: CATAPLEXY
     Route: 048
     Dates: start: 20130115, end: 2013
  3. OXCARBAZEPINE (OXCARBAZEPINE) [Concomitant]
  4. PROTRIPTYLINE HCL (PROTRIPTYLINE HYDROCHLORIDE) [Concomitant]
  5. LORAZEPAM (LORAZEPAM) [Concomitant]
  6. SUMATRIPTAN (SUMATRIPTAN) [Concomitant]

REACTIONS (3)
  - Epilepsy [None]
  - Cataplexy [None]
  - Electroencephalogram [None]
